FAERS Safety Report 21786118 (Version 2)
Quarter: 2023Q1

REPORT INFORMATION
  Report Type: Report from Study
  Country: US (occurrence: US)
  Receive Date: 20221228
  Receipt Date: 20230202
  Transmission Date: 20230417
  Serious: No
  Sender: FDA-Public Use
  Company Number: US-ABBVIE-4204862

PATIENT
  Sex: Female

DRUGS (3)
  1. SKYRIZI [Suspect]
     Active Substance: RISANKIZUMAB-RZAA
     Indication: Psoriasis
     Dosage: THE DRUG START DATE WAS 01 NOV 2022.?WEEK ZERO
     Route: 058
     Dates: start: 20221101
  2. SKYRIZI [Suspect]
     Active Substance: RISANKIZUMAB-RZAA
     Dosage: THE DRUG START DATE WAS 29 NOV 2022.?WEEK FOUR
     Route: 058
  3. METHOTREXATE [Concomitant]
     Active Substance: METHOTREXATE
     Indication: Psoriasis
     Dosage: 16 MG EVERY SATURDAY
     Route: 065
     Dates: start: 2016

REACTIONS (7)
  - Candida infection [Not Recovered/Not Resolved]
  - Infectious mononucleosis [Unknown]
  - Loss of personal independence in daily activities [Unknown]
  - Injection site bruising [Recovered/Resolved]
  - Rash [Unknown]
  - Psoriasis [Unknown]
  - Solar lentigo [Unknown]

NARRATIVE: CASE EVENT DATE: 20220101
